FAERS Safety Report 13654130 (Version 1)
Quarter: 2017Q2

REPORT INFORMATION
  Report Type: Spontaneous
  Country: AU (occurrence: AU)
  Receive Date: 20170614
  Receipt Date: 20170614
  Transmission Date: 20170830
  Serious: Yes (Other)
  Sender: FDA-Public Use
  Company Number: AU-BAUSCH-BL-2017-018957

PATIENT
  Age: 59 Year
  Sex: Male

DRUGS (3)
  1. PRAMIPEXOLE. [Suspect]
     Active Substance: PRAMIPEXOLE
     Indication: SUICIDAL IDEATION
     Route: 048
  2. MIRTAZAPINE. [Suspect]
     Active Substance: MIRTAZAPINE
     Indication: SUICIDAL IDEATION
     Route: 048
  3. VENLAFAXINE [Suspect]
     Active Substance: VENLAFAXINE HYDROCHLORIDE
     Indication: SUICIDAL IDEATION
     Route: 048

REACTIONS (13)
  - Urinary retention [Recovering/Resolving]
  - Heart rate increased [Recovering/Resolving]
  - Ataxia [Recovering/Resolving]
  - Myoclonus [Recovering/Resolving]
  - Hypervigilance [Recovering/Resolving]
  - Blood lactic acid increased [Recovering/Resolving]
  - Feeling jittery [Recovering/Resolving]
  - Overdose [Unknown]
  - Dizziness [Recovering/Resolving]
  - Agitation [Recovered/Resolved]
  - Toxicity to various agents [Unknown]
  - Hallucination, visual [Recovered/Resolved]
  - Dysuria [Recovering/Resolving]
